FAERS Safety Report 4681000-3 (Version None)
Quarter: 2005Q2

REPORT INFORMATION
  Report Type: 
  Country: None (occurrence: None)
  Receive Date: 20050601
  Receipt Date: 20050519
  Transmission Date: 20051028
  Serious: Yes (Other)
  Sender: FDA-Public Use
  Company Number: 2005077110

PATIENT
  Sex: Female

DRUGS (2)
  1. BEXTRA [Suspect]
     Indication: ILL-DEFINED DISORDER
     Dosage: ORAL
     Route: 048
  2. ROFECOXIB [Suspect]
     Indication: ILL-DEFINED DISORDER

REACTIONS (6)
  - GASTROINTESTINAL DISORDER [None]
  - MOBILITY DECREASED [None]
  - OEDEMA MOUTH [None]
  - OEDEMA PERIPHERAL [None]
  - SWELLING [None]
  - VISUAL ACUITY REDUCED [None]
